FAERS Safety Report 7557088-9 (Version None)
Quarter: 2011Q2

REPORT INFORMATION
  Report Type: 
  Country: None (occurrence: None)
  Receive Date: 20110620
  Receipt Date: 20110614
  Transmission Date: 20111010
  Serious: Yes (Hospitalization, Other)
  Sender: FDA-Public Use
  Company Number: SE-PFIZER INC-2011129505

PATIENT
  Age: 60 Year
  Sex: Male

DRUGS (2)
  1. SULFASALAZINE [Suspect]
     Indication: CROHN'S DISEASE
     Dosage: 2 G, 1X/DAY
     Route: 048
     Dates: start: 20110221, end: 20110421
  2. OMEPRAZOLE [Concomitant]
     Dosage: UNK

REACTIONS (2)
  - AGRANULOCYTOSIS [None]
  - PSEUDOMONAS TEST POSITIVE [None]
